FAERS Safety Report 12225468 (Version 1)
Quarter: 2016Q1

REPORT INFORMATION
  Report Type: Spontaneous
  Country: US (occurrence: None)
  Receive Date: 20160330
  Receipt Date: 20160330
  Transmission Date: 20160526
  Serious: Yes (Other)
  Sender: FDA-Public Use
  Company Number: None

PATIENT
  Age: 34 Year
  Sex: Male
  Weight: 75.3 kg

DRUGS (7)
  1. NATURE-THROID [Suspect]
     Active Substance: THYROID, PORCINE
     Indication: THYROIDECTOMY
     Route: 048
  2. HYDROCODONE [Concomitant]
     Active Substance: HYDROCODONE
  3. WPTHYROID [Suspect]
     Active Substance: THYROID, PORCINE
  4. NATURE-THROID [Suspect]
     Active Substance: THYROID, PORCINE
     Indication: HORMONE REPLACEMENT THERAPY
     Route: 048
  5. GABAPENTIN. [Concomitant]
     Active Substance: GABAPENTIN
  6. CYCLEBENAPRINE [Concomitant]
  7. LEVOTHYROXINE. [Suspect]
     Active Substance: LEVOTHYROXINE

REACTIONS (22)
  - Pain in extremity [None]
  - Hypoaesthesia oral [None]
  - Chest discomfort [None]
  - Lethargy [None]
  - Peripheral coldness [None]
  - Myalgia [None]
  - Product quality issue [None]
  - Tremor [None]
  - Drug ineffective [None]
  - Heart rate abnormal [None]
  - Mean platelet volume decreased [None]
  - Paraesthesia [None]
  - Blood thyroid stimulating hormone increased [None]
  - Axillary pain [None]
  - Thyroxine free decreased [None]
  - Tri-iodothyronine decreased [None]
  - Eosinophil count decreased [None]
  - No reaction on previous exposure to drug [None]
  - Hot flush [None]
  - Hypoaesthesia [None]
  - Haemoglobin increased [None]
  - Hangover [None]

NARRATIVE: CASE EVENT DATE: 20160201
